FAERS Safety Report 9303944 (Version 2)
Quarter: 2013Q3

REPORT INFORMATION
  Report Type: Spontaneous
  Country: US (occurrence: US)
  Receive Date: 20130522
  Receipt Date: 20130710
  Transmission Date: 20140515
  Serious: Yes (Life-Threatening, Hospitalization)
  Sender: FDA-Public Use
  Company Number: US-UCBSA-086569

PATIENT
  Age: 65 Year
  Sex: Female
  Weight: 60.78 kg

DRUGS (9)
  1. OMEPRAZOLE [Suspect]
     Dosage: DAILY DOSE: 20 MG
  2. LEVOTHYROXINE [Suspect]
     Dosage: DAILY DOSE: 88 MICROGRAMS
  3. METOPROLOL [Suspect]
  4. IRBESARTAN [Suspect]
     Dosage: DAILY DOSE: 300 MG
  5. ATORVASTATIN [Suspect]
     Dosage: DAILY DOSE: 10 MG
  6. DIAZEPAM [Suspect]
     Dosage: ONCE EVERY 8 HOURS
  7. HYDROCHLOROTHIAZIDE [Suspect]
     Dosage: DAILY DOSE: 25 MG (FOR MANY YEARS)
  8. VIVELLE DOT [Suspect]
     Dosage: PATCH
  9. ACETAMINOPHEN [Suspect]

REACTIONS (2)
  - Cerebral ischaemia [Recovered/Resolved]
  - Hyponatraemia [Recovered/Resolved]
